FAERS Safety Report 6402313-0 (Version None)
Quarter: 2009Q4

REPORT INFORMATION
  Report Type: 
  Country: None (occurrence: None)
  Receive Date: 20091015
  Receipt Date: 20091013
  Transmission Date: 20100525
  Serious: Yes (Death)
  Sender: FDA-Public Use
  Company Number: PHHY2009CA41599

PATIENT
  Sex: Female

DRUGS (6)
  1. ACLASTA [Suspect]
     Indication: OSTEOPOROSIS
     Dosage: 5 MG, UNK
     Dates: start: 20080819, end: 20080819
  2. COLCHICINE [Concomitant]
     Dosage: 0.5 MG, BID
  3. PLAQUENIL [Concomitant]
     Dosage: 230 MG, BID
  4. PREDNISONE [Concomitant]
     Dosage: 10 MG, UNK
  5. NAPROXEN [Concomitant]
     Dosage: 375 MG, UNK
  6. CALTRATE + D [Concomitant]
     Dosage: 600 MG, BID

REACTIONS (1)
  - LYMPHOMA [None]
